FAERS Safety Report 5701268-1 (Version None)
Quarter: 2008Q2

REPORT INFORMATION
  Report Type: 
  Country: None (occurrence: None)
  Receive Date: 20080410
  Receipt Date: 20080402
  Transmission Date: 20081010
  Serious: Yes (Hospitalization)
  Sender: FDA-Public Use
  Company Number: DE-ABBOTT-08P-062-0440686-00

PATIENT
  Age: 55 Year
  Sex: Female

DRUGS (2)
  1. HUMIRA [Suspect]
     Indication: ANKYLOSING SPONDYLITIS
     Route: 058
     Dates: start: 20070101
  2. ACETYLSALICYLIC ACID SRT [Concomitant]
     Indication: HEADACHE

REACTIONS (4)
  - ALOPECIA [None]
  - RASH ERYTHEMATOUS [None]
  - SKIN LESION [None]
  - WOUND [None]
